FAERS Safety Report 4278431-2 (Version None)
Quarter: 2004Q1

REPORT INFORMATION
  Report Type: 
  Country: None (occurrence: None)
  Receive Date: 20040121
  Receipt Date: 20040106
  Transmission Date: 20041129
  Serious: Yes (Hospitalization)
  Sender: FDA-Public Use
  Company Number: US_040199773

PATIENT
  Age: 64 Year
  Sex: Female

DRUGS (4)
  1. NPH ILETIN II (PORK) [Suspect]
     Dosage: 32 U/IN THE MORNING
  2. REGULAR INSULIN [Suspect]
  3. INSULIN [Suspect]
     Dates: start: 19740101
  4. PREDNISONE [Concomitant]

REACTIONS (2)
  - BLOOD GLUCOSE INCREASED [None]
  - POLYMYALGIA RHEUMATICA [None]
